FAERS Safety Report 14228369 (Version 1)
Quarter: 2017Q4

REPORT INFORMATION
  Report Type: Spontaneous
  Country: US (occurrence: None)
  Receive Date: 20171124
  Receipt Date: 20171124
  Transmission Date: 20180321
  Serious: No
  Sender: FDA-Public Use
  Company Number: None

PATIENT
  Age: 64 Year
  Sex: Female

DRUGS (1)
  1. TEMOZOLOMIDE 300MG MERCK [Suspect]
     Active Substance: TEMOZOLOMIDE
     Indication: CARCINOID SYNDROME
     Dosage: FREQUENCY - DAILY FOR 5 DAYS EVERY 28 DAY CYCLE
     Route: 048
     Dates: start: 20170924, end: 20170927

REACTIONS (6)
  - Constipation [None]
  - Fatigue [None]
  - Decreased appetite [None]
  - Headache [None]
  - Vomiting [None]
  - Pyrexia [None]

NARRATIVE: CASE EVENT DATE: 20171004
